FAERS Safety Report 7660940-7 (Version None)
Quarter: 2011Q3

REPORT INFORMATION
  Report Type: 
  Country: None (occurrence: None)
  Receive Date: 20110805
  Receipt Date: 20100928
  Transmission Date: 20111222
  Serious: No
  Sender: FDA-Public Use
  Company Number: US-ABBOTT-10P-163-0674443-00

PATIENT
  Sex: Male
  Weight: 118.04 kg

DRUGS (8)
  1. NIASPAN [Suspect]
     Indication: LOW DENSITY LIPOPROTEIN DECREASED
     Dosage: 1000MG A DAY FOR A ONE WEEK
     Dates: start: 20100901
  2. LIPITOR [Concomitant]
     Indication: PRODUCT USED FOR UNKNOWN INDICATION
     Route: 048
  3. TOPRAL [Concomitant]
     Indication: PRODUCT USED FOR UNKNOWN INDICATION
     Route: 048
  4. PRILOSEC OTC [Concomitant]
     Indication: PRODUCT USED FOR UNKNOWN INDICATION
     Route: 048
  5. ASPIRIN [Concomitant]
     Indication: PRODUCT USED FOR UNKNOWN INDICATION
     Route: 048
  6. GINKO BILOBA [Concomitant]
     Indication: PRODUCT USED FOR UNKNOWN INDICATION
     Route: 048
  7. LASIX [Concomitant]
     Indication: PRODUCT USED FOR UNKNOWN INDICATION
     Dosage: 20MG EVERY OTHER DAY
     Route: 048
  8. NIASPAN [Suspect]
     Indication: HIGH DENSITY LIPOPROTEIN DECREASED
     Route: 048
     Dates: start: 20100821, end: 20100901

REACTIONS (5)
  - HOT FLUSH [None]
  - FLUSHING [None]
  - ERYTHEMA [None]
  - PRURITUS [None]
  - PARAESTHESIA [None]
